FAERS Safety Report 7503863-6 (Version None)
Quarter: 2011Q2

REPORT INFORMATION
  Report Type: 
  Country: None (occurrence: None)
  Receive Date: 20110524
  Receipt Date: 20110524
  Transmission Date: 20111010
  Serious: Yes (Life-Threatening, Other)
  Sender: FDA-Public Use
  Company Number: None

PATIENT
  Age: 46 Year
  Sex: Female
  Weight: 53.0709 kg

DRUGS (4)
  1. PHENAZOPYRIDINE HCL TAB [Suspect]
     Dosage: 200MGS 10 1155435-07416
     Dates: start: 20110328
  2. CIPROFLOXACIN [Suspect]
     Indication: CYSTITIS
     Dosage: 500MGS 1 TAB 2X DAY 1655433-07416
     Dates: start: 20110328
  3. COLBALT TABS [Concomitant]
  4. OPYRIDINE [Concomitant]

REACTIONS (3)
  - ESCHERICHIA INFECTION [None]
  - URINARY TRACT INFECTION [None]
  - IMMUNE SYSTEM DISORDER [None]
